FAERS Safety Report 7586547-8 (Version None)
Quarter: 2011Q2

REPORT INFORMATION
  Report Type: 
  Country: None (occurrence: None)
  Receive Date: 20110630
  Receipt Date: 20110630
  Transmission Date: 20111010
  Serious: Yes (Other)
  Sender: FDA-Public Use
  Company Number: None

PATIENT
  Age: 90 Year
  Sex: Female
  Weight: 66.6788 kg

DRUGS (2)
  1. ENALAPRIL MALEATE [Suspect]
     Indication: BLOOD PRESSURE
     Dosage: 10MG 1 PER DAY BY MOUTH WITH/WITHOUT
     Route: 048
     Dates: start: 20101001
  2. ENALAPRIL MALEATE [Suspect]
     Indication: BLOOD PRESSURE
     Dosage: 5MG 2 PER DAY
     Dates: start: 20110301, end: 20110401

REACTIONS (4)
  - PRODUCT SUBSTITUTION ISSUE [None]
  - OESOPHAGEAL IRRITATION [None]
  - DIZZINESS [None]
  - BURNING SENSATION [None]
